FAERS Safety Report 21525478 (Version 1)
Quarter: 2022Q4

REPORT INFORMATION
  Report Type: Spontaneous
  Country: US (occurrence: None)
  Receive Date: 20221028
  Receipt Date: 20221028
  Transmission Date: 20230113
  Serious: Yes (Hospitalization)
  Sender: FDA-Public Use
  Company Number: None

PATIENT
  Sex: Male
  Weight: 78.5 kg

DRUGS (3)
  1. CARBOPLATIN [Suspect]
     Active Substance: CARBOPLATIN
  2. DURVALUMAB [Concomitant]
     Active Substance: DURVALUMAB
  3. TAXOL [Concomitant]
     Active Substance: PACLITAXEL

REACTIONS (4)
  - Coronavirus test positive [None]
  - Angina pectoris [None]
  - Gastrooesophageal reflux disease [None]
  - Hiatus hernia [None]

NARRATIVE: CASE EVENT DATE: 20221020
